FAERS Safety Report 5546811-0 (Version None)
Quarter: 2007Q4

REPORT INFORMATION
  Report Type: 
  Country: None (occurrence: None)
  Receive Date: 20071206
  Receipt Date: 20071126
  Transmission Date: 20080405
  Serious: Yes (Hospitalization)
  Sender: FDA-Public Use
  Company Number: E2090-00340-SPO-JP

PATIENT
  Age: 40 Year
  Sex: Male

DRUGS (14)
  1. ZONISAMIDE [Suspect]
     Indication: EPILEPSY
     Dosage: 300 MG, ORAL
     Route: 048
     Dates: start: 20070801, end: 20071101
  2. ZONISAMIDE [Suspect]
     Indication: PERIPHERAL NERVE INJURY
     Dosage: 300 MG, ORAL
     Route: 048
     Dates: start: 20070801, end: 20071101
  3. ZONISAMIDE [Suspect]
     Indication: SUBACUTE COMBINED CORD DEGENERATION
     Dosage: 300 MG, ORAL
     Route: 048
     Dates: start: 20070801, end: 20071101
  4. LANSOPRAZOLE [Suspect]
     Dosage: 30 MG, ORAL
     Route: 048
  5. CARBAMAZEPINE [Concomitant]
  6. PYRAZOLONE (PYRAZOLONES) [Concomitant]
  7. ANTI-PYRETICS (OTHER ANALGESTICS AND ANTIPYRETICS) [Concomitant]
  8. ANTI-INFLAMMATORIES (OTHER ANTIINFLAMMATORY AGENTS IN COMB.) [Concomitant]
  9. PHENYTOIN [Concomitant]
  10. CLONAZEPAM [Concomitant]
  11. AMLODIPINE BESYLATE [Concomitant]
  12. MUCOSTA (REBAMIPIDE) [Concomitant]
  13. FAMOTIDINE [Concomitant]
  14. METHYCOBAL (MECOBALAMIN) [Concomitant]

REACTIONS (8)
  - ANAEMIA VITAMIN B12 DEFICIENCY [None]
  - ANOREXIA [None]
  - EPILEPSY [None]
  - HEPATITIS ACUTE [None]
  - MYELOPATHY [None]
  - PYREXIA [None]
  - RASH GENERALISED [None]
  - VOMITING [None]
